FAERS Safety Report 9417496 (Version 2)
Quarter: 2014Q1

REPORT INFORMATION
  Report Type: Spontaneous
  Country: US (occurrence: US)
  Receive Date: 20130724
  Receipt Date: 20140122
  Transmission Date: 20141002
  Serious: No
  Sender: FDA-Public Use
  Company Number: US-BRISTOL-MYERS SQUIBB COMPANY-18714840

PATIENT
  Age: 85 Year
  Sex: Male
  Weight: 74.83 kg

DRUGS (19)
  1. ISOSORBIDE DINITRATE [Concomitant]
  2. NEXIUM [Concomitant]
     Dosage: 40MG DAILY
  3. HCTZ [Concomitant]
  4. LIPITOR [Concomitant]
  5. PROSCAR [Concomitant]
  6. FLOMAX [Concomitant]
  7. FISH OIL [Concomitant]
  8. VITAMIN [Concomitant]
     Dosage: 0-3 2000 IU
  9. CALCIUM CITRATE [Concomitant]
  10. CENTRUM SILVER [Concomitant]
  11. COLACE [Concomitant]
  12. BENEFIBER [Concomitant]
  13. COQ10 [Concomitant]
  14. COREG [Concomitant]
  15. IMDUR [Concomitant]
  16. RANEXA [Concomitant]
  17. ASPIRIN [Concomitant]
  18. ELIQUIS [Suspect]
     Indication: ATRIAL FIBRILLATION
     Dosage: LAST DOSE: 28-MAR-2013 ?REDUCED DOSE: 2.5MG BID
     Route: 048
     Dates: start: 20130320
  19. LEVOTHYROXINE [Concomitant]

REACTIONS (9)
  - Asthenia [Unknown]
  - Epistaxis [Unknown]
  - Flatulence [Unknown]
  - Facial pain [Unknown]
  - Joint swelling [Unknown]
  - Heart rate decreased [Unknown]
  - Dizziness [Unknown]
  - Rash [Unknown]
  - Hearing impaired [Unknown]
